FAERS Safety Report 9087736 (Version 1)
Quarter: 2013Q1

REPORT INFORMATION
  Report Type: Spontaneous
  Country: US (occurrence: US)
  Receive Date: 20130218
  Receipt Date: 20130218
  Transmission Date: 20140127
  Serious: No
  Sender: FDA-Public Use
  Company Number: US-009507513-1302USA007212

PATIENT
  Age: 50 Year
  Sex: Male

DRUGS (1)
  1. JANUMET XR [Suspect]
     Indication: TYPE 2 DIABETES MELLITUS
     Dosage: 2000MG/100 MG, QD
     Route: 048
     Dates: start: 201301, end: 201302

REACTIONS (2)
  - Diarrhoea [Unknown]
  - Inappropriate schedule of drug administration [Unknown]
